FAERS Safety Report 4494436-0 (Version None)
Quarter: 2004Q4

REPORT INFORMATION
  Report Type: 
  Country: None (occurrence: None)
  Receive Date: 20041102
  Receipt Date: 20041015
  Transmission Date: 20050328
  Serious: Yes (Death, Hospitalization)
  Sender: FDA-Public Use
  Company Number: JP_040904426

PATIENT
  Age: 75 Year
  Sex: Female
  Weight: 56 kg

DRUGS (7)
  1. GEMZAR [Suspect]
     Indication: LUNG ADENOCARCINOMA
     Dosage: 1000 MG OTHER
     Dates: start: 20040708, end: 20040715
  2. IRINOTECAN HYDROCHLORIDE [Concomitant]
  3. BETAMETHASONE [Concomitant]
  4. ALTAT (ROXATIDINE ACETATE HYDROCHLORIDE) [Concomitant]
  5. MAXIPIME [Concomitant]
  6. DOPAMINE HYDROCHLORIDE [Concomitant]
  7. BOSMIN(EPINEPHRINE HYDROCHLORIDE) [Concomitant]

REACTIONS (16)
  - ABDOMINAL DISTENSION [None]
  - ANOREXIA [None]
  - BLOOD PRESSURE DECREASED [None]
  - C-REACTIVE PROTEIN INCREASED [None]
  - CARDIAC ARREST [None]
  - CEREBRAL INFARCTION [None]
  - DEHYDRATION [None]
  - DIARRHOEA [None]
  - DRUG INEFFECTIVE [None]
  - FATIGUE [None]
  - HEPATIC FUNCTION ABNORMAL [None]
  - MARKEDLY REDUCED DIETARY INTAKE [None]
  - MYOCARDIAL INFARCTION [None]
  - PLATELET COUNT DECREASED [None]
  - PO2 DECREASED [None]
  - RENAL IMPAIRMENT [None]
